FAERS Safety Report 12409719 (Version 1)
Quarter: 2016Q2

REPORT INFORMATION
  Report Type: Spontaneous
  Country: US (occurrence: US)
  Receive Date: 20160526
  Receipt Date: 20160526
  Transmission Date: 20160815
  Serious: Yes (Hospitalization)
  Sender: FDA-Public Use
  Company Number: US-MYLANLABS-2016M1021673

PATIENT

DRUGS (3)
  1. METHOTREXATE [Suspect]
     Active Substance: METHOTREXATE
     Indication: ACUTE PROMYELOCYTIC LEUKAEMIA
     Dosage: 15 MG/M2 (TOTAL: 30MG ONCE A WEEK)
     Route: 048
  2. MERCAPTOPURINE. [Suspect]
     Active Substance: MERCAPTOPURINE
     Indication: ACUTE PROMYELOCYTIC LEUKAEMIA
     Dosage: 90 MG/M2 (TOTAL: 100MG BID)
     Route: 048
  3. TRETINOIN. [Suspect]
     Active Substance: TRETINOIN
     Indication: ACUTE PROMYELOCYTIC LEUKAEMIA
     Dosage: 45 MG/M2 (TOTAL: 50 MG BID FOR 15 DAYS EVERY 3 MONTHS)
     Route: 048

REACTIONS (5)
  - Febrile neutropenia [Recovering/Resolving]
  - Pancytopenia [Recovered/Resolved]
  - Rash [Unknown]
  - Mucosal inflammation [Unknown]
  - Rectal haemorrhage [Unknown]
